FAERS Safety Report 5142610-2 (Version None)
Quarter: 2006Q4

REPORT INFORMATION
  Report Type: 
  Country: None (occurrence: None)
  Receive Date: 20061027
  Receipt Date: 20061012
  Transmission Date: 20070319
  Serious: Yes (Other)
  Sender: FDA-Public Use
  Company Number: 2006ADE/DICLO-024

PATIENT
  Age: 72 Year
  Sex: Male

DRUGS (12)
  1. DICLOFENAC-RATIOPHARM 75 SL (RETARDTABLETTEN) [Suspect]
     Indication: CYSTITIS
     Dosage: 3 X 75MG, DAILY, ORAL
     Route: 048
     Dates: start: 20060817
  2. VALSARTAN + DIURETICS [Concomitant]
  3. NEBIVOLOL HCL [Concomitant]
  4. GLYDERYL TRINITRATE [Concomitant]
  5. CLOPIDOGREL [Concomitant]
  6. LERCANIDIPINE [Concomitant]
  7. TAMSULOSIN HCL [Concomitant]
  8. ALLOPURINOL [Concomitant]
  9. SIMVASTATIN [Concomitant]
  10. THEOPHYLLINE [Concomitant]
  11. SALBUTAMOL [Concomitant]
  12. BECLOMETHASONE DIPROPIONATE [Concomitant]

REACTIONS (2)
  - EPISTAXIS [None]
  - HYPERTENSION [None]
